FAERS Safety Report 5408915-2 (Version None)
Quarter: 2007Q3

REPORT INFORMATION
  Report Type: 
  Country: None (occurrence: None)
  Receive Date: 20070808
  Receipt Date: 20070727
  Transmission Date: 20080115
  Serious: Yes (Other)
  Sender: FDA-Public Use
  Company Number: US-PFIZER INC-2007064099

PATIENT
  Sex: Female
  Weight: 81.363 kg

DRUGS (10)
  1. CHANTIX [Suspect]
     Indication: SMOKING CESSATION THERAPY
  2. AVANDIA [Concomitant]
  3. METFORMIN HCL [Concomitant]
  4. PREMARIN [Concomitant]
  5. RELAFEN [Concomitant]
  6. AMITRIPTYLINE HCL [Concomitant]
  7. OXYCONTIN [Concomitant]
  8. BENICAR [Concomitant]
  9. ZETIA [Concomitant]
  10. TRICOR [Concomitant]

REACTIONS (1)
  - BLOOD GLUCOSE INCREASED [None]
